FAERS Safety Report 9638452 (Version 1)
Quarter: 2013Q4

REPORT INFORMATION
  Report Type: Report from Study
  Country: US (occurrence: US)
  Receive Date: 20131022
  Receipt Date: 20131022
  Transmission Date: 20140711
  Serious: Yes (Hospitalization)
  Sender: FDA-Public Use
  Company Number: US-GLAXOSMITHKLINE-A1031424C

PATIENT
  Age: 72 Year
  Sex: Female
  Weight: 67.4 kg

DRUGS (16)
  1. OFATUMUMAB [Suspect]
     Indication: CHRONIC LYMPHOCYTIC LEUKAEMIA
     Dosage: 1000MG WEEKLY
     Route: 042
     Dates: start: 20130705
  2. METHYLPREDNISOLONE [Suspect]
     Indication: CHRONIC LYMPHOCYTIC LEUKAEMIA
  3. ACYCLOVIR [Concomitant]
  4. ATOVAQUONE [Concomitant]
  5. AZITHROMYCIN [Concomitant]
  6. CALTRATE [Concomitant]
  7. CEPHALEXIN [Concomitant]
  8. CLOTRIMAZOLE [Concomitant]
  9. COZAAR [Concomitant]
  10. DILAUDID [Concomitant]
  11. FONDAPARINUX [Concomitant]
  12. GABAPENTIN [Concomitant]
  13. LASIX [Concomitant]
  14. LEVOXYL [Concomitant]
  15. MAGNESIUM OXIDE [Concomitant]
  16. VORICONAZOLE [Concomitant]

REACTIONS (2)
  - Cellulitis [Not Recovered/Not Resolved]
  - Compartment syndrome [Not Recovered/Not Resolved]
